FAERS Safety Report 15312881 (Version 1)
Quarter: 2018Q3

REPORT INFORMATION
  Report Type: Spontaneous
  Country: US (occurrence: US)
  Receive Date: 20180823
  Receipt Date: 20180823
  Transmission Date: 20181010
  Serious: Yes (Other)
  Sender: FDA-Public Use
  Company Number: US-AKORN PHARMACEUTICALS-2018AKN01140

PATIENT
  Sex: Male
  Weight: 69.39 kg

DRUGS (1)
  1. MYORISAN [Suspect]
     Active Substance: ISOTRETINOIN
     Indication: ACNE CYSTIC
     Dosage: 30 MG, 1X/DAY
     Route: 048
     Dates: start: 2018, end: 201807

REACTIONS (7)
  - Dry skin [Recovered/Resolved]
  - Off label use [Recovered/Resolved]
  - Mood altered [Unknown]
  - Dry eye [Recovered/Resolved]
  - Lip dry [Recovered/Resolved]
  - Epistaxis [Recovered/Resolved]
  - Myalgia [Recovered/Resolved]

NARRATIVE: CASE EVENT DATE: 2018
